FAERS Safety Report 13797067 (Version 2)
Quarter: 2017Q3

REPORT INFORMATION
  Report Type: Spontaneous
  Country: FR (occurrence: FR)
  Receive Date: 20170727
  Receipt Date: 20170802
  Transmission Date: 20171127
  Serious: Yes (Other)
  Sender: FDA-Public Use
  Company Number: FR-ABBVIE-17K-056-2031433-00

PATIENT
  Age: 46 Year
  Sex: Female
  Weight: 60 kg

DRUGS (2)
  1. HUMIRA [Suspect]
     Active Substance: ADALIMUMAB
     Indication: CROHN^S DISEASE
     Route: 058
     Dates: start: 201704, end: 2017
  2. HUMIRA [Suspect]
     Active Substance: ADALIMUMAB
     Indication: ANKYLOSING SPONDYLITIS
     Route: 058
     Dates: start: 20170330, end: 20170330

REACTIONS (8)
  - Hypersensitivity [Not Recovered/Not Resolved]
  - Skin burning sensation [Not Recovered/Not Resolved]
  - Erythema [Not Recovered/Not Resolved]
  - Systemic lupus erythematosus [Unknown]
  - Skin discolouration [Unknown]
  - Pruritus [Not Recovered/Not Resolved]
  - Rash generalised [Not Recovered/Not Resolved]
  - Injection site hypersensitivity [Not Recovered/Not Resolved]

NARRATIVE: CASE EVENT DATE: 2017
